FAERS Safety Report 12376455 (Version 1)
Quarter: 2016Q2

REPORT INFORMATION
  Report Type: Spontaneous
  Country: US (occurrence: US)
  Receive Date: 20160517
  Receipt Date: 20160517
  Transmission Date: 20160815
  Serious: No
  Sender: FDA-Public Use
  Company Number: US-TEIKOKU PHARMA USA-TPU2016-00142

PATIENT
  Age: 58 Year
  Sex: Female
  Weight: 63.11 kg

DRUGS (5)
  1. FENTANYL. [Concomitant]
     Active Substance: FENTANYL
     Indication: BACK PAIN
     Dates: start: 2004
  2. SYNTHROID [Concomitant]
     Active Substance: LEVOTHYROXINE SODIUM
  3. LIDOCAINE PATCH [Suspect]
     Active Substance: LIDOCAINE
     Indication: BACK PAIN
     Route: 061
     Dates: start: 20160303
  4. OXYCODONE [Concomitant]
     Active Substance: OXYCODONE
     Indication: BACK PAIN
     Dates: start: 2004
  5. TRAMADOL. [Concomitant]
     Active Substance: TRAMADOL
     Indication: BREAKTHROUGH PAIN
     Dates: start: 2004

REACTIONS (2)
  - Drug ineffective for unapproved indication [Not Recovered/Not Resolved]
  - Wrong technique in product usage process [Unknown]

NARRATIVE: CASE EVENT DATE: 20160303
